FAERS Safety Report 9454213 (Version 1)
Quarter: 2013Q3

REPORT INFORMATION
  Report Type: Spontaneous
  Country: US (occurrence: None)
  Receive Date: 20130807
  Receipt Date: 20130807
  Transmission Date: 20140515
  Serious: Yes (Hospitalization)
  Sender: FDA-Public Use
  Company Number: USW201307-000089

PATIENT
  Age: 75 Year
  Sex: Male

DRUGS (5)
  1. APOKYN [Suspect]
     Indication: PARKINSON^S DISEASE
     Dosage: 0;2 ML (UP TO 5 TIMES A DAY)
     Dates: start: 20130221, end: 2013
  2. SINEMET (CARBIDOPA, LEVODOPA) (CARBIDOPA, LEVODOPA) [Concomitant]
  3. NEIPRO (ROTOGOTINE) (ROTOGOTINE) [Concomitant]
  4. LEVOLET (LEVOTHYROXINE) (LEVOTHYROXINE) [Concomitant]
  5. METFORMIN (METFORMIN) (METFORMIN) [Concomitant]

REACTIONS (2)
  - Fatigue [None]
  - Mobility decreased [None]
